FAERS Safety Report 25926927 (Version 1)
Quarter: 2025Q4

REPORT INFORMATION
  Report Type: Spontaneous
  Country: US (occurrence: None)
  Receive Date: 20251015
  Receipt Date: 20251015
  Transmission Date: 20260117
  Serious: Yes (Hospitalization)
  Sender: FDA-CTU
  Company Number: None

PATIENT
  Sex: Male

DRUGS (11)
  1. ZEPOSIA [Suspect]
     Active Substance: OZANIMOD HYDROCHLORIDE
     Indication: Colitis ulcerative
     Dosage: FREQUENCY : DAILY;?
     Route: 048
  2. ACYCLOVIR [Concomitant]
     Active Substance: ACYCLOVIR
  3. ALFUZOSIN [Concomitant]
     Active Substance: ALFUZOSIN
  4. DEXAMETHASONE [Concomitant]
     Active Substance: DEXAMETHASONE
  5. DOXYCYCLINE HYCLATE [Concomitant]
     Active Substance: DOXYCYCLINE HYCLATE
  6. FINASTERIDE [Concomitant]
     Active Substance: FINASTERIDE
  7. LATANOPROST [Concomitant]
     Active Substance: LATANOPROST
  8. OXYCODONE [Concomitant]
     Active Substance: OXYCODONE
  9. POT CHLORIDE ER [Concomitant]
  10. TERBINAFINE [Concomitant]
     Active Substance: TERBINAFINE
  11. ZEPOSIA [Concomitant]
     Active Substance: OZANIMOD HYDROCHLORIDE

REACTIONS (5)
  - Therapy interrupted [None]
  - Pneumonia [None]
  - B-cell lymphoma [None]
  - Muscle spasms [None]
  - Weight fluctuation [None]
